FAERS Safety Report 8480536-7 (Version None)
Quarter: 2012Q3

REPORT INFORMATION
  Report Type: 
  Country: None (occurrence: None)
  Receive Date: 20120702
  Receipt Date: 20120622
  Transmission Date: 20120928
  Serious: No
  Sender: FDA-Public Use
  Company Number: US-BIOGENIDEC-2012BI022545

PATIENT
  Sex: Female

DRUGS (3)
  1. TYSABRI [Suspect]
     Indication: MULTIPLE SCLEROSIS
     Route: 042
     Dates: start: 20070625, end: 20081008
  2. TYSABRI [Suspect]
     Route: 042
     Dates: start: 20090331
  3. TYSABRI [Suspect]
     Route: 042
     Dates: start: 20080601, end: 20090101

REACTIONS (4)
  - MUSCULAR WEAKNESS [None]
  - BALANCE DISORDER [None]
  - NUCLEAR MAGNETIC RESONANCE IMAGING ABNORMAL [None]
  - ASTHENIA [None]
